FAERS Safety Report 21690391 (Version 1)
Quarter: 2022Q4

REPORT INFORMATION
  Report Type: Report from Study
  Country: NL (occurrence: NL)
  Receive Date: 20221206
  Receipt Date: 20221206
  Transmission Date: 20230113
  Serious: Yes (Hospitalization, Other)
  Sender: FDA-Public Use
  Company Number: NL-GILEAD-2022-0607658

PATIENT
  Age: 61 Year
  Sex: Male
  Weight: 90 kg

DRUGS (9)
  1. BREXUCABTAGENE AUTOLEUCEL [Suspect]
     Active Substance: BREXUCABTAGENE AUTOLEUCEL
     Indication: Mantle cell lymphoma
     Dosage: 68 (NO UNITS PROVIDED)
     Route: 042
     Dates: start: 20221122, end: 20221122
  2. FLUDARABINE [Suspect]
     Active Substance: FLUDARABINE PHOSPHATE
     Indication: Bone marrow conditioning regimen
     Dosage: 65 (NO UNITS PROVIDED)
     Route: 065
     Dates: start: 20221117, end: 20221119
  3. CYCLOPHOSPHAMIDE [Suspect]
     Active Substance: CYCLOPHOSPHAMIDE
     Indication: Bone marrow conditioning regimen
     Dosage: 1080 (UNITS NOT PROVIDED)
     Route: 065
     Dates: start: 20221117, end: 20221119
  4. MESNA [Suspect]
     Active Substance: MESNA
     Indication: Prophylaxis
     Dosage: 400 (UNITS NOT PROVIDED)
     Route: 065
     Dates: start: 20221117, end: 20221120
  5. DEXAMETHASONE [Suspect]
     Active Substance: DEXAMETHASONE
     Indication: Mantle cell lymphoma
     Dosage: 40 (UNITS NOT PROVIDED)
     Route: 065
     Dates: start: 20221027, end: 20221030
  6. ALLOPURINOL [Concomitant]
     Active Substance: ALLOPURINOL
     Dosage: 300,MG,DAILY
     Route: 048
     Dates: start: 20221027
  7. FLUDEOXYGLUCOSE F-18 [Concomitant]
     Active Substance: FLUDEOXYGLUCOSE F-18
     Dosage: 1,OTHER,ONCE
     Route: 042
     Dates: start: 20221114, end: 20221114
  8. IOBITRIDOL [Concomitant]
     Active Substance: IOBITRIDOL
     Dosage: 90,ML,ONCE
     Route: 042
     Dates: start: 20221114, end: 20221114
  9. LIDOCAINE [Concomitant]
     Active Substance: LIDOCAINE
     Dosage: 8,ML,ONCE
     Route: 058
     Dates: start: 20221117, end: 20221117

REACTIONS (1)
  - Neurological decompensation [Recovered/Resolved]

NARRATIVE: CASE EVENT DATE: 20221202
